FAERS Safety Report 20794481 (Version 1)
Quarter: 2022Q2

REPORT INFORMATION
  Report Type: Spontaneous
  Country: US (occurrence: US)
  Receive Date: 20220506
  Receipt Date: 20220506
  Transmission Date: 20220721
  Serious: Yes (Death, Life-Threatening, Hospitalization)
  Sender: FDA-Public Use
  Company Number: US-MYLANLABS-2022M1032963

PATIENT
  Age: 33 Year
  Sex: Male

DRUGS (9)
  1. HEPARIN [Suspect]
     Active Substance: HEPARIN SODIUM
     Indication: Anticoagulant therapy
     Dosage: UNK, INFUSION
  2. HEPARIN [Suspect]
     Active Substance: HEPARIN SODIUM
     Indication: Hypercoagulation
  3. ARGATROBAN [Suspect]
     Active Substance: ARGATROBAN
     Indication: Anticoagulant therapy
     Dosage: UNK
     Route: 065
  4. ARGATROBAN [Suspect]
     Active Substance: ARGATROBAN
     Indication: Hypercoagulation
  5. FONDAPARINUX [Suspect]
     Active Substance: FONDAPARINUX
     Indication: Anticoagulant therapy
     Dosage: UNK
     Route: 065
  6. FONDAPARINUX [Suspect]
     Active Substance: FONDAPARINUX
     Indication: Hypercoagulation
  7. WARFARIN [Suspect]
     Active Substance: WARFARIN
     Indication: Anticoagulant therapy
     Dosage: UNK
     Route: 065
  8. WARFARIN [Suspect]
     Active Substance: WARFARIN
     Indication: Hypercoagulation
  9. AMIODARONE [Concomitant]
     Active Substance: AMIODARONE
     Indication: Cardioversion
     Dosage: UNK
     Route: 065

REACTIONS (1)
  - Drug ineffective [Fatal]
